FAERS Safety Report 6081511-2 (Version None)
Quarter: 2009Q1

REPORT INFORMATION
  Report Type: 
  Country: None (occurrence: None)
  Receive Date: 20090213
  Receipt Date: 20090209
  Transmission Date: 20090719
  Serious: Yes (Death)
  Sender: FDA-Public Use
  Company Number: 1000003701

PATIENT
  Age: 76 Year
  Sex: Male

DRUGS (3)
  1. LEXAPRO [Suspect]
     Indication: DEPRESSION
     Dosage: 10 MG (10 MG, 1 IN 1 D), ORAL
     Route: 048
     Dates: start: 20090107, end: 20090124
  2. REQUIP [Concomitant]
  3. SINEMET [Concomitant]

REACTIONS (2)
  - COMPLETED SUICIDE [None]
  - STRESS [None]
